FAERS Safety Report 8306538 (Version 3)
Quarter: 2013Q2

REPORT INFORMATION
  Report Type: Spontaneous
  Country: JP (occurrence: JP)
  Receive Date: 20111222
  Receipt Date: 20130603
  Transmission Date: 20140414
  Serious: Yes (Hospitalization)
  Sender: FDA-Public Use
  Company Number: JP-ELI_LILLY_AND_COMPANY-JP201112003098

PATIENT
  Age: 75 Year
  Sex: Female

DRUGS (5)
  1. FORTEO [Suspect]
     Route: 058
  2. FORTEO [Suspect]
     Dosage: UNK
     Route: 058
     Dates: start: 20111130
  3. FORTEO [Suspect]
     Route: 058
  4. FORTEO [Suspect]
     Dosage: UNK
     Route: 058
  5. FORTEO [Suspect]
     Dosage: UNK
     Route: 058
     Dates: end: 20130501

REACTIONS (1)
  - Cardiac disorder [Unknown]
